FAERS Safety Report 23470723 (Version 2)
Quarter: 2024Q1

REPORT INFORMATION
  Report Type: Spontaneous
  Country: BR (occurrence: BR)
  Receive Date: 20240202
  Receipt Date: 20240219
  Transmission Date: 20240410
  Serious: Yes (Life-Threatening, Hospitalization, Other)
  Sender: FDA-Public Use
  Company Number: BR-SA-SAC20240131000646

PATIENT
  Age: 50 Year
  Sex: Male
  Weight: 73 kg

DRUGS (6)
  1. ISATUXIMAB [Suspect]
     Active Substance: ISATUXIMAB
     Indication: Plasma cell myeloma
     Dosage: 730MG
     Route: 042
     Dates: start: 20240121, end: 20240210
  2. ACETAMINOPHEN [Concomitant]
     Active Substance: ACETAMINOPHEN
     Dosage: 750 MG
  3. MONTELUKAST [Concomitant]
     Active Substance: MONTELUKAST SODIUM
     Dosage: 8 MG
  4. DEXAMETHASONE [Concomitant]
     Active Substance: DEXAMETHASONE
     Dosage: 20MG
  5. DIPYRONE [Concomitant]
     Active Substance: DIPYRONE
     Dosage: 1000 MG, QID
  6. MORPHINE [Concomitant]
     Active Substance: MORPHINE
     Dosage: 5 MG, QID

REACTIONS (4)
  - Tachycardia [Recovered/Resolved]
  - Hypoxia [Recovered/Resolved]
  - Hypertensive crisis [Recovered/Resolved]
  - Dyspnoea [Recovered/Resolved]

NARRATIVE: CASE EVENT DATE: 20240121
